FAERS Safety Report 5637554-3 (Version None)
Quarter: 2008Q1

REPORT INFORMATION
  Report Type: 
  Country: None (occurrence: None)
  Receive Date: 20080225
  Receipt Date: 20080213
  Transmission Date: 20080703
  Serious: Yes (Other)
  Sender: FDA-Public Use
  Company Number: US-PFIZER INC-2008014912

PATIENT
  Sex: Female
  Weight: 48.181 kg

DRUGS (7)
  1. CHANTIX [Suspect]
     Indication: SMOKING CESSATION THERAPY
     Dates: start: 20080201, end: 20080208
  2. OXYCODONE HCL [Concomitant]
  3. ZANAFLEX [Concomitant]
  4. ALPRAZOLAM [Concomitant]
  5. SKELAXIN [Concomitant]
  6. SEROQUEL [Concomitant]
  7. TRIVORA-21 [Concomitant]

REACTIONS (6)
  - BACK PAIN [None]
  - MALAISE [None]
  - PANIC ATTACK [None]
  - RENAL PAIN [None]
  - VISUAL DISTURBANCE [None]
  - VOMITING [None]
